FAERS Safety Report 10133770 (Version 1)
Quarter: 2014Q2

REPORT INFORMATION
  Report Type: Spontaneous
  Country: US (occurrence: US)
  Receive Date: 20140428
  Receipt Date: 20140428
  Transmission Date: 20141212
  Serious: Yes (Other)
  Sender: FDA-Public Use
  Company Number: US-BAYER-2014-061076

PATIENT
  Age: 55 Year
  Sex: Male

DRUGS (14)
  1. RIVAROXABAN [Suspect]
     Indication: THROMBOSIS PROPHYLAXIS
     Dosage: UNK
     Route: 048
  2. RIVAROXABAN [Suspect]
     Indication: ATRIAL FIBRILLATION
  3. ACETYLSALICYLIC ACID({=100 MG) [Suspect]
  4. HEPARIN [Suspect]
     Indication: ATRIAL FIBRILLATION
     Route: 042
  5. PRASUGREL [Suspect]
  6. ATORVASTATIN [Concomitant]
  7. CLONIDINE [Concomitant]
  8. FUROSEMIDE [Concomitant]
  9. POTASSIUM CHLORIDE [Concomitant]
  10. AMLODIPINE [Concomitant]
  11. INSULIN [Concomitant]
  12. ALLOPURINOL [Concomitant]
  13. HYDRALAZINE [Concomitant]
  14. DILTIAZEM [Concomitant]
     Indication: ATRIAL FIBRILLATION
     Route: 042

REACTIONS (1)
  - Epistaxis [Recovered/Resolved]
